FAERS Safety Report 8880222 (Version 2)
Quarter: 2013Q1

REPORT INFORMATION
  Report Type: Spontaneous
  Country: US (occurrence: US)
  Receive Date: 20121101
  Receipt Date: 20130124
  Transmission Date: 20140127
  Serious: No
  Sender: FDA-Public Use
  Company Number: US-009507513-1210USA010281

PATIENT
  Sex: Male
  Weight: 112.47 kg

DRUGS (3)
  1. VICTRELIS [Suspect]
  2. PEGASYS [Suspect]
  3. RIBASPHERE [Suspect]

REACTIONS (6)
  - Leukopenia [Unknown]
  - Rash [Unknown]
  - Swelling face [Unknown]
  - Eye swelling [Unknown]
  - Fluid retention [Unknown]
  - Weight increased [Unknown]
